FAERS Safety Report 4827744-1 (Version None)
Quarter: 2005Q4

REPORT INFORMATION
  Report Type: 
  Country: None (occurrence: None)
  Receive Date: 20051110
  Receipt Date: 20051031
  Transmission Date: 20060501
  Serious: Yes (Hospitalization, Other)
  Sender: FDA-Public Use
  Company Number: USA-2003-0009434

PATIENT
  Age: 39 Year
  Sex: Male
  Weight: 96.6 kg

DRUGS (16)
  1. OXYCONTIN [Suspect]
     Indication: PAIN
     Dosage: SEE IMAGE, ORAL
     Route: 048
     Dates: start: 20010101
  2. SOMA [Concomitant]
  3. LORAZEPAM [Concomitant]
  4. CLONAZEPAM [Concomitant]
  5. PAXIL [Concomitant]
  6. AMOXICILLIN [Concomitant]
  7. RYNATAN [Concomitant]
  8. SALMON PILLS [Concomitant]
  9. CALCIUM GLUCONATE [Concomitant]
  10. PREDNISONE [Concomitant]
  11. CENTRUM (MINERALS NOS, VITAMINS NOS) [Concomitant]
  12. ASPIRIN [Concomitant]
  13. NICOTINE [Concomitant]
  14. GARLIC (GARLIC) [Concomitant]
  15. FLEXERIL [Concomitant]
  16. BEXTRA [Concomitant]

REACTIONS (35)
  - ANOREXIA [None]
  - ANXIETY [None]
  - BACK PAIN [None]
  - CHEST PAIN [None]
  - CHRONIC SINUSITIS [None]
  - COUGH [None]
  - DENTAL CARIES [None]
  - DEPRESSION [None]
  - DRUG DEPENDENCE [None]
  - DRUG EFFECT DECREASED [None]
  - DRUG WITHDRAWAL SYNDROME [None]
  - EUPHORIC MOOD [None]
  - HAEMOPTYSIS [None]
  - HEADACHE [None]
  - INADEQUATE ANALGESIA [None]
  - IRRITABILITY [None]
  - LOSS OF LIBIDO [None]
  - LUNG DISORDER [None]
  - LUNG INFILTRATION [None]
  - MEMORY IMPAIRMENT [None]
  - MOOD ALTERED [None]
  - MUSCLE SPASMS [None]
  - MUSCLE TWITCHING [None]
  - NIGHTMARE [None]
  - PAIN [None]
  - PAIN IN EXTREMITY [None]
  - PANIC ATTACK [None]
  - PNEUMONIA [None]
  - POLYP [None]
  - PRURITUS [None]
  - RALES [None]
  - RASH [None]
  - TREMOR [None]
  - VARICOCELE [None]
  - VISION BLURRED [None]
